FAERS Safety Report 8431351-1 (Version None)
Quarter: 2012Q2

REPORT INFORMATION
  Report Type: 
  Country: None (occurrence: None)
  Receive Date: 20120613
  Receipt Date: 20120605
  Transmission Date: 20120825
  Serious: No
  Sender: FDA-Public Use
  Company Number: US-BIOGENIDEC-2012BI019912

PATIENT
  Sex: Female

DRUGS (1)
  1. AVONEX [Suspect]
     Indication: MULTIPLE SCLEROSIS
     Route: 030
     Dates: start: 20120401

REACTIONS (6)
  - GAIT DISTURBANCE [None]
  - DISSOCIATION [None]
  - FEAR [None]
  - MENTAL IMPAIRMENT [None]
  - MOBILITY DECREASED [None]
  - DIZZINESS [None]
